FAERS Safety Report 7000378-9 (Version None)
Quarter: 2010Q3

REPORT INFORMATION
  Report Type: 
  Country: None (occurrence: None)
  Receive Date: 20100920
  Receipt Date: 20070615
  Transmission Date: 20110219
  Serious: No
  Sender: FDA-Public Use
  Company Number: US-ASTRAZENECA-2006UW09189

PATIENT
  Age: 44 Year
  Sex: Male
  Weight: 90.7 kg

DRUGS (19)
  1. SEROQUEL [Suspect]
     Indication: SCHIZOPHRENIA
     Dosage: 25MG-800MG
     Route: 048
     Dates: start: 20011201
  2. SEROQUEL [Suspect]
     Indication: ANXIETY
     Dosage: 25MG-800MG
     Route: 048
     Dates: start: 20011201
  3. SEROQUEL [Suspect]
     Dosage: APPROX. 100 TO 600 MG
     Route: 048
     Dates: start: 20020101, end: 20050101
  4. SEROQUEL [Suspect]
     Dosage: APPROX. 100 TO 600 MG
     Route: 048
     Dates: start: 20020101, end: 20050101
  5. ZYPREXA [Suspect]
     Dosage: 5MG-20MG
     Route: 048
     Dates: start: 19970912
  6. ABILIFY [Concomitant]
     Dosage: 15 TO 30 MG
     Dates: start: 20030101
  7. ABILIFY [Concomitant]
     Dosage: 10MG-30MG
     Route: 048
     Dates: start: 20030331
  8. GEODON [Concomitant]
     Dates: start: 20050101
  9. HALDOL [Concomitant]
  10. RISPERDAL [Concomitant]
     Dates: start: 20060101
  11. RISPERDAL [Concomitant]
     Dosage: 2MG-4MG
     Route: 048
     Dates: start: 19960214
  12. SONATA [Concomitant]
     Route: 048
     Dates: start: 20030508
  13. ZYRTEC [Concomitant]
     Route: 048
     Dates: start: 20050518
  14. COGENTIN [Concomitant]
     Dosage: 1MG-5MG
     Route: 048
     Dates: start: 19940415
  15. LIPITOR [Concomitant]
     Route: 048
     Dates: start: 20060113
  16. TEMAZEPAM [Concomitant]
     Route: 048
     Dates: start: 20060111
  17. LEXAPRO [Concomitant]
     Route: 048
     Dates: start: 20060127
  18. ATIVAN [Concomitant]
     Dosage: 0.5MG-2MG
     Route: 048
     Dates: start: 20050804
  19. AMBIEN [Concomitant]
     Route: 048
     Dates: start: 20050804

REACTIONS (6)
  - ARTHROPATHY [None]
  - BLOOD CHOLESTEROL INCREASED [None]
  - DIABETES MELLITUS [None]
  - HYPOGLYCAEMIA [None]
  - JOINT EFFUSION [None]
  - SUBCUTANEOUS ABSCESS [None]
